FAERS Safety Report 23264696 (Version 1)
Quarter: 2023Q4

REPORT INFORMATION
  Report Type: Spontaneous
  Country: US (occurrence: US)
  Receive Date: 20231205
  Receipt Date: 20231205
  Transmission Date: 20240110
  Serious: Yes (Hospitalization)
  Sender: FDA-Public Use
  Company Number: US-STRIDES ARCOLAB LIMITED-2023SP018028

PATIENT
  Age: 1 Decade

DRUGS (1)
  1. ETOPOSIDE [Suspect]
     Active Substance: ETOPOSIDE
     Indication: Retinoblastoma
     Dosage: UNK (THERAPY COMPLETED PRIOR TO ONSET OF ADR )
     Route: 065

REACTIONS (2)
  - B-cell type acute leukaemia [Recovered/Resolved]
  - Off label use [Unknown]
